FAERS Safety Report 20958055 (Version 2)
Quarter: 2024Q3

REPORT INFORMATION
  Report Type: Spontaneous
  Country: US (occurrence: US)
  Receive Date: 20220614
  Receipt Date: 20240710
  Transmission Date: 20241017
  Serious: Yes (Other)
  Sender: PIERRE FABRE MEDICAMENT
  Company Number: US-MLMSERVICE-20210429-2866026-1

PATIENT
  Age: 30 Month
  Sex: Male
  Weight: 12.7 kg

DRUGS (4)
  1. PROPRANOLOL HYDROCHLORIDE [Suspect]
     Active Substance: PROPRANOLOL HYDROCHLORIDE
     Indication: Supraventricular tachycardia
     Dosage: 3 MG/KG, UNK
     Route: 065
  2. PROPRANOLOL HYDROCHLORIDE [Suspect]
     Active Substance: PROPRANOLOL HYDROCHLORIDE
     Indication: Off label use
  3. SOTYLIZE [Suspect]
     Active Substance: SOTALOL HYDROCHLORIDE
     Indication: Supraventricular tachycardia
     Dosage: 200 MG/M2, 1 DAY
     Route: 048
  4. SOTYLIZE [Suspect]
     Active Substance: SOTALOL HYDROCHLORIDE
     Dosage: 165 MG/M2, 1DAY
     Route: 048

REACTIONS (4)
  - Hypoglycaemia [Recovered/Resolved]
  - Off label use [Unknown]
  - Product use issue [Unknown]
  - Product use in unapproved indication [Unknown]
